FAERS Safety Report 18581787 (Version 1)
Quarter: 2020Q4

REPORT INFORMATION
  Report Type: Spontaneous
  Country: US (occurrence: US)
  Receive Date: 20201204
  Receipt Date: 20201204
  Transmission Date: 20210114
  Serious: Yes (Other)
  Sender: FDA-Public Use
  Company Number: None

PATIENT
  Age: 66 Year
  Sex: Female
  Weight: 74.7 kg

DRUGS (9)
  1. AMLODIPINE [Concomitant]
     Active Substance: AMLODIPINE BESYLATE
  2. CALCIUM/VITAMIN D [Concomitant]
     Active Substance: CALCIUM\VITAMIN D
  3. PIQRAY [Suspect]
     Active Substance: ALPELISIB
     Indication: BREAST CANCER STAGE IV
     Route: 048
     Dates: start: 20200922, end: 20200929
  4. FASLODEX [Concomitant]
     Active Substance: FULVESTRANT
  5. FENTANYL. [Concomitant]
     Active Substance: FENTANYL
  6. SYNTHROID [Concomitant]
     Active Substance: LEVOTHYROXINE SODIUM
  7. DOXYCYCLINE. [Concomitant]
     Active Substance: DOXYCYCLINE
  8. OXYCODONE [Concomitant]
     Active Substance: OXYCODONE
  9. VOLTAREN [Concomitant]
     Active Substance: DICLOFENAC SODIUM

REACTIONS (3)
  - Pain in extremity [None]
  - Rash [None]
  - Peripheral swelling [None]

NARRATIVE: CASE EVENT DATE: 20200929
